FAERS Safety Report 8338000-1 (Version None)
Quarter: 2012Q2

REPORT INFORMATION
  Report Type: 
  Country: None (occurrence: None)
  Receive Date: 20120504
  Receipt Date: 20120424
  Transmission Date: 20120825
  Serious: Yes (Hospitalization)
  Sender: FDA-Public Use
  Company Number: NL-JNJFOC-20120410766

PATIENT
  Age: 15 Year
  Sex: Male

DRUGS (2)
  1. CONCERTA [Suspect]
     Indication: PRODUCT USED FOR UNKNOWN INDICATION
     Route: 048
     Dates: start: 20120423
  2. CONCERTA [Suspect]
     Route: 048

REACTIONS (5)
  - HEADACHE [None]
  - VISION BLURRED [None]
  - CHEST PAIN [None]
  - SYNCOPE [None]
  - NAUSEA [None]
